FAERS Safety Report 4600549-2 (Version None)
Quarter: 2005Q1

REPORT INFORMATION
  Report Type: 
  Country: None (occurrence: None)
  Receive Date: 20050304
  Receipt Date: 20050223
  Transmission Date: 20050727
  Serious: Yes (Death)
  Sender: FDA-Public Use
  Company Number: 2005JP000410

PATIENT
  Age: 25 Year
  Sex: Male

DRUGS (3)
  1. PROGRAF [Suspect]
     Indication: BONE MARROW TRANSPLANT
     Dosage: UNKNOWN
     Route: 065
     Dates: start: 20040901
  2. CYCLOPHOSPHAMIDE [Concomitant]
     Dosage: UNKNOWN
     Route: 065
     Dates: start: 20040901, end: 20040901
  3. METHOTREXATE [Concomitant]

REACTIONS (14)
  - ALANINE AMINOTRANSFERASE INCREASED [None]
  - ASCITES [None]
  - ASPARTATE AMINOTRANSFERASE INCREASED [None]
  - BLOOD BILIRUBIN INCREASED [None]
  - BLOOD LACTATE DEHYDROGENASE INCREASED [None]
  - CAPILLARY LEAK SYNDROME [None]
  - ENGRAFTMENT SYNDROME [None]
  - HAEMODIALYSIS [None]
  - HYPOVOLAEMIC SHOCK [None]
  - LIVER DISORDER [None]
  - MULTI-ORGAN FAILURE [None]
  - PLEURAL EFFUSION [None]
  - VENOOCCLUSIVE LIVER DISEASE [None]
  - WEIGHT INCREASED [None]
